FAERS Safety Report 26202491 (Version 1)
Quarter: 2025Q4

REPORT INFORMATION
  Report Type: Spontaneous
  Country: JP (occurrence: JP)
  Receive Date: 20251226
  Receipt Date: 20251226
  Transmission Date: 20260118
  Serious: Yes (Other)
  Sender: MERCK SHARP & DOHME LLC
  Company Number: JP-009507513-2354997

PATIENT
  Age: 69 Year
  Sex: Male

DRUGS (33)
  1. KEYTRUDA [Suspect]
     Active Substance: PEMBROLIZUMAB
     Indication: Adenocarcinoma gastric stage IV
     Route: 065
     Dates: start: 20240913, end: 20241030
  2. KEYTRUDA [Suspect]
     Active Substance: PEMBROLIZUMAB
     Indication: Adenocarcinoma gastric stage IV
     Route: 065
     Dates: start: 20250523, end: 20250523
  3. KEYTRUDA [Suspect]
     Active Substance: PEMBROLIZUMAB
     Indication: Adenocarcinoma gastric stage IV
     Route: 065
     Dates: start: 20250613, end: 20250613
  4. KEYTRUDA [Suspect]
     Active Substance: PEMBROLIZUMAB
     Indication: Adenocarcinoma gastric stage IV
     Route: 065
     Dates: start: 20250704, end: 20250704
  5. KEYTRUDA [Suspect]
     Active Substance: PEMBROLIZUMAB
     Indication: Adenocarcinoma gastric stage IV
     Route: 065
     Dates: start: 20250725, end: 20250725
  6. KEYTRUDA [Suspect]
     Active Substance: PEMBROLIZUMAB
     Indication: Adenocarcinoma gastric stage IV
     Route: 065
     Dates: start: 20250912, end: 20250912
  7. KEYTRUDA [Suspect]
     Active Substance: PEMBROLIZUMAB
     Indication: Adenocarcinoma gastric stage IV
     Route: 065
     Dates: start: 20251003, end: 20251003
  8. KEYTRUDA [Suspect]
     Active Substance: PEMBROLIZUMAB
     Indication: Adenocarcinoma gastric stage IV
     Route: 065
     Dates: start: 20251024, end: 20251024
  9. KEYTRUDA [Suspect]
     Active Substance: PEMBROLIZUMAB
     Indication: Adenocarcinoma gastric stage IV
     Route: 065
     Dates: start: 20251114, end: 20251114
  10. KEYTRUDA [Suspect]
     Active Substance: PEMBROLIZUMAB
     Indication: Adenocarcinoma gastric stage IV
     Route: 065
     Dates: start: 20241204, end: 20241204
  11. KEYTRUDA [Suspect]
     Active Substance: PEMBROLIZUMAB
     Indication: Adenocarcinoma gastric stage IV
     Route: 065
     Dates: start: 20241225, end: 20241225
  12. KEYTRUDA [Suspect]
     Active Substance: PEMBROLIZUMAB
     Indication: Adenocarcinoma gastric stage IV
     Route: 065
     Dates: start: 20250117, end: 20250117
  13. KEYTRUDA [Suspect]
     Active Substance: PEMBROLIZUMAB
     Indication: Adenocarcinoma gastric stage IV
     Route: 065
     Dates: start: 20250207, end: 20250207
  14. KEYTRUDA [Suspect]
     Active Substance: PEMBROLIZUMAB
     Indication: Adenocarcinoma gastric stage IV
     Route: 065
     Dates: start: 20250228, end: 20250228
  15. KEYTRUDA [Suspect]
     Active Substance: PEMBROLIZUMAB
     Indication: Adenocarcinoma gastric stage IV
     Route: 065
     Dates: start: 20250321, end: 20250321
  16. KEYTRUDA [Suspect]
     Active Substance: PEMBROLIZUMAB
     Indication: Adenocarcinoma gastric stage IV
     Route: 065
     Dates: start: 20250411, end: 20250411
  17. KEYTRUDA [Suspect]
     Active Substance: PEMBROLIZUMAB
     Indication: Adenocarcinoma gastric stage IV
     Dates: start: 20250502, end: 20250502
  18. CAPECITABINE [Suspect]
     Active Substance: CAPECITABINE
     Indication: Adenocarcinoma gastric stage IV
     Dosage: XELODA 3000MG, OXALI 80%
     Dates: start: 20240913, end: 20241030
  19. TS-1 [Suspect]
     Active Substance: GIMERACIL\OTERACIL POTASSIUM\TEGAFUR
     Indication: Adenocarcinoma gastric stage IV
     Dosage: TWO STEP DOSE REDUCTION
     Dates: start: 20250411, end: 20250411
  20. TS-1 [Suspect]
     Active Substance: GIMERACIL\OTERACIL POTASSIUM\TEGAFUR
     Indication: Adenocarcinoma gastric stage IV
     Dosage: TWO STEP DOSE REDUCTION
     Dates: start: 20250502, end: 20250502
  21. TS-1 [Suspect]
     Active Substance: GIMERACIL\OTERACIL POTASSIUM\TEGAFUR
     Indication: Adenocarcinoma gastric stage IV
     Dosage: TWO STEP DOSE REDUCTION
     Dates: start: 20250523, end: 20250523
  22. TS-1 [Suspect]
     Active Substance: GIMERACIL\OTERACIL POTASSIUM\TEGAFUR
     Indication: Adenocarcinoma gastric stage IV
     Dosage: TWO STEP DOSE REDUCTION
     Dates: start: 20250613, end: 20250613
  23. TS-1 [Suspect]
     Active Substance: GIMERACIL\OTERACIL POTASSIUM\TEGAFUR
     Indication: Adenocarcinoma gastric stage IV
     Dosage: TWO STEP DOSE REDUCTION
     Dates: start: 20250704, end: 20250704
  24. TS-1 [Suspect]
     Active Substance: GIMERACIL\OTERACIL POTASSIUM\TEGAFUR
     Indication: Adenocarcinoma gastric stage IV
     Dosage: TWO STEP DOSE REDUCTION
     Dates: start: 20250725, end: 20250725
  25. TS-1 [Suspect]
     Active Substance: GIMERACIL\OTERACIL POTASSIUM\TEGAFUR
     Indication: Adenocarcinoma gastric stage IV
     Dosage: TWO STEP DOSE REDUCTION
     Dates: start: 20250912, end: 20250912
  26. TS-1 [Suspect]
     Active Substance: GIMERACIL\OTERACIL POTASSIUM\TEGAFUR
     Indication: Adenocarcinoma gastric stage IV
     Dosage: TWO STEP DOSE REDUCTION
     Dates: start: 20251003, end: 20251003
  27. TS-1 [Suspect]
     Active Substance: GIMERACIL\OTERACIL POTASSIUM\TEGAFUR
     Indication: Adenocarcinoma gastric stage IV
     Dosage: TWO STEP DOSE REDUCTION
     Dates: start: 20251024, end: 20251024
  28. TS-1 [Suspect]
     Active Substance: GIMERACIL\OTERACIL POTASSIUM\TEGAFUR
     Indication: Adenocarcinoma gastric stage IV
     Dosage: TWO STEP DOSE REDUCTION
     Dates: start: 20251114, end: 20251114
  29. OXALIPLATIN [Suspect]
     Active Substance: OXALIPLATIN
     Indication: Gastric cancer
     Dosage: S-1 100MG DAILY (FROM ONE STEP DOSE REDUCTION), OXALIPLATIN 80%
     Dates: start: 20241204, end: 20241204
  30. OXALIPLATIN [Suspect]
     Active Substance: OXALIPLATIN
     Indication: Gastric cancer
     Dosage: S-1 100MG DAILY (FROM ONE STEP DOSE REDUCTION), OXALIPLATIN 80%
     Dates: start: 20250117, end: 20250117
  31. OXALIPLATIN [Suspect]
     Active Substance: OXALIPLATIN
     Indication: Gastric cancer
     Dosage: S-1 80MG DAILY (FROM ONE STEP DOSE REDUCTION), OXALIPLATIN 80%
     Dates: start: 20250207, end: 20250207
  32. OXALIPLATIN [Suspect]
     Active Substance: OXALIPLATIN
     Indication: Gastric cancer
     Dosage: S-1 80MG DAILY (FROM ONE STEP DOSE REDUCTION), OXALIPLATIN 80%
     Dates: start: 20250228, end: 20250228
  33. OXALIPLATIN [Suspect]
     Active Substance: OXALIPLATIN
     Indication: Gastric cancer
     Dosage: S-1 80MG DAILY (FROM ONE STEP DOSE REDUCTION), OXALIPLATIN 80%
     Dates: start: 20250321, end: 20250321

REACTIONS (21)
  - Bronchiectasis [Unknown]
  - Haemoptysis [Unknown]
  - Feeding disorder [Unknown]
  - Diarrhoea [Recovering/Resolving]
  - Nocturia [Unknown]
  - Malaise [Recovering/Resolving]
  - Weight decreased [Unknown]
  - Adrenomegaly [Unknown]
  - Cough [Unknown]
  - Lung opacity [Unknown]
  - Neutrophil count decreased [Recovering/Resolving]
  - Pneumobilia [Unknown]
  - Hepatic steatosis [Unknown]
  - Hypoaesthesia [Recovering/Resolving]
  - Therapy partial responder [Unknown]
  - Lung opacity [Unknown]
  - Pleural effusion [Not Recovered/Not Resolved]
  - Pulmonary imaging procedure abnormal [Unknown]
  - Somnolence [Unknown]
  - Hepatic cyst [Unknown]
  - COVID-19 [Unknown]

NARRATIVE: CASE EVENT DATE: 20240101
